FAERS Safety Report 24428268 (Version 1)
Quarter: 2024Q4

REPORT INFORMATION
  Report Type: Spontaneous
  Country: US (occurrence: None)
  Receive Date: 20241010
  Receipt Date: 20241010
  Transmission Date: 20250114
  Serious: No
  Sender: Public
  Company Number: None

PATIENT

DRUGS (1)
  1. PRAVASTATIN [Suspect]
     Active Substance: PRAVASTATIN

REACTIONS (4)
  - Paraesthesia [None]
  - Paraesthesia [None]
  - Headache [None]
  - Dizziness [None]
